FAERS Safety Report 10159721 (Version 1)
Quarter: 2014Q2

REPORT INFORMATION
  Report Type: Spontaneous
  Country: US (occurrence: US)
  Receive Date: 20140508
  Receipt Date: 20140508
  Transmission Date: 20141212
  Serious: No
  Sender: FDA-Public Use
  Company Number: US-GLAXOSMITHKLINE-A1023131A

PATIENT
  Age: 57 Year
  Sex: Female

DRUGS (24)
  1. TYKERB [Suspect]
     Indication: BREAST CANCER
     Dosage: 1000MG PER DAY
     Route: 048
     Dates: start: 20130427
  2. ZOMETA [Concomitant]
  3. MULTIVITAMIN [Concomitant]
  4. MELATONIN [Concomitant]
  5. HERCEPTIN [Concomitant]
  6. CARBAMAZEPINE [Concomitant]
  7. WELLBUTRIN [Concomitant]
  8. LECITHIN [Concomitant]
  9. VITAMIN D [Concomitant]
  10. PROCHLORPERAZINE [Concomitant]
  11. PROAIR HFA [Concomitant]
  12. CELEXA [Concomitant]
  13. HYDROCHLOROTHIAZIDE [Concomitant]
  14. LEVOTHYROXINE [Concomitant]
  15. DEXAMETHASONE [Concomitant]
  16. SENNA [Concomitant]
  17. MIRALAX [Concomitant]
  18. OXYCODONE [Concomitant]
  19. OXYCONTIN [Concomitant]
  20. ZOFRAN [Concomitant]
  21. LIDODERM [Concomitant]
  22. LACTOBACILLUS ACIDOPHILUS [Concomitant]
  23. BISACODYL [Concomitant]
  24. HYDROXYZINE [Concomitant]

REACTIONS (6)
  - Diarrhoea [Unknown]
  - Nausea [Unknown]
  - Vomiting [Unknown]
  - Headache [Unknown]
  - Fatigue [Unknown]
  - Rash [Unknown]
